FAERS Safety Report 24848610 (Version 1)
Quarter: 2025Q1

REPORT INFORMATION
  Report Type: Report from Study
  Country: IN (occurrence: IN)
  Receive Date: 20250116
  Receipt Date: 20250116
  Transmission Date: 20250408
  Serious: Yes (Death)
  Sender: ROCHE
  Company Number: IN-ROCHE-10000104582

PATIENT
  Age: 55 Year
  Sex: Female

DRUGS (1)
  1. TECENTRIQ [Suspect]
     Active Substance: ATEZOLIZUMAB
     Indication: Lung neoplasm malignant
     Route: 042
     Dates: start: 20240902

REACTIONS (7)
  - Vomiting [Unknown]
  - Asthenia [Unknown]
  - Platelet count decreased [Unknown]
  - Drug intolerance [Unknown]
  - Lung carcinoma cell type unspecified stage IV [Fatal]
  - Drug ineffective [Fatal]
  - Ill-defined disorder [Fatal]
